FAERS Safety Report 7417137-5 (Version None)
Quarter: 2011Q2

REPORT INFORMATION
  Report Type: 
  Country: None (occurrence: None)
  Receive Date: 20110408
  Receipt Date: 20110323
  Transmission Date: 20111010
  Serious: Yes (Other)
  Sender: FDA-Public Use
  Company Number: 2011P1005442

PATIENT
  Age: 75 Year
  Sex: Male

DRUGS (4)
  1. UNSPECIFIED STEROID [Concomitant]
  2. TEMOZOLOMIDE [Concomitant]
  3. OXCARBAZEPINE [Suspect]
     Indication: EPILEPSY
     Dosage: 900 MG;QD;PO
     Route: 048
  4. OXCARBAZEPINE [Suspect]
     Indication: BRAIN NEOPLASM
     Dosage: 900 MG;QD;PO
     Route: 048

REACTIONS (4)
  - PYREXIA [None]
  - RADIATION INTERACTION [None]
  - ERYTHEMA MULTIFORME [None]
  - IDIOSYNCRATIC DRUG REACTION [None]
